FAERS Safety Report 7779883-3 (Version None)
Quarter: 2011Q3

REPORT INFORMATION
  Report Type: 
  Country: None (occurrence: None)
  Receive Date: 20110927
  Receipt Date: 20110627
  Transmission Date: 20111222
  Serious: No
  Sender: FDA-Public Use
  Company Number: US-ASTRAZENECA-2010SE54701

PATIENT
  Age: 61 Year
  Sex: Female

DRUGS (16)
  1. SEROQUEL [Suspect]
     Route: 048
     Dates: start: 20110601
  2. TRICOR [Concomitant]
     Indication: BLOOD CHOLESTEROL
  3. SEROQUEL [Suspect]
     Indication: OBSESSIVE-COMPULSIVE DISORDER
     Route: 048
  4. SEROQUEL [Suspect]
     Route: 048
     Dates: start: 20100101, end: 20100801
  5. SEROQUEL [Suspect]
     Route: 048
     Dates: start: 20100801, end: 20110601
  6. SEROQUEL [Suspect]
     Indication: DEPRESSION
     Route: 048
  7. SEROQUEL [Suspect]
     Route: 048
     Dates: start: 20100101, end: 20100801
  8. SEROQUEL [Suspect]
     Route: 048
     Dates: start: 20110601
  9. LORAZEPAM [Concomitant]
     Indication: ANXIETY
  10. SEROQUEL [Suspect]
     Indication: SLEEP DISORDER
     Route: 048
  11. THYROID MEDICATION [Concomitant]
     Indication: THYROID DISORDER
  12. SEROQUEL [Suspect]
     Route: 048
     Dates: start: 20100801, end: 20110601
  13. SEROQUEL [Suspect]
     Route: 048
     Dates: start: 20100101, end: 20100801
  14. CELEXA [Concomitant]
     Indication: OBSESSIVE-COMPULSIVE DISORDER
  15. SEROQUEL [Suspect]
     Route: 048
     Dates: start: 20100801, end: 20110601
  16. SEROQUEL [Suspect]
     Route: 048
     Dates: start: 20110601

REACTIONS (5)
  - INCORRECT DOSE ADMINISTERED [None]
  - INFLUENZA [None]
  - WITHDRAWAL SYNDROME [None]
  - SOMNOLENCE [None]
  - TACHYPHRENIA [None]
